FAERS Safety Report 23966856 (Version 2)
Quarter: 2024Q2

REPORT INFORMATION
  Report Type: Spontaneous
  Country: IE (occurrence: IE)
  Receive Date: 20240612
  Receipt Date: 20240618
  Transmission Date: 20240716
  Serious: Yes (Other)
  Sender: FDA-Public Use
  Company Number: IE-002147023-NVSC2024IE122350

PATIENT
  Sex: Female

DRUGS (1)
  1. DIOVAN [Suspect]
     Active Substance: VALSARTAN
     Indication: Blood pressure management
     Dosage: 40 MG, QD
     Route: 065

REACTIONS (2)
  - Age-related macular degeneration [Unknown]
  - Cataract [Unknown]

NARRATIVE: CASE EVENT DATE: 20231101
